FAERS Safety Report 20844772 (Version 2)
Quarter: 2022Q2

REPORT INFORMATION
  Report Type: Report from Study
  Country: BE (occurrence: BE)
  Receive Date: 20220518
  Receipt Date: 20220525
  Transmission Date: 20220721
  Serious: Yes (Hospitalization)
  Sender: FDA-Public Use
  Company Number: BE-ROCHE-3049803

PATIENT
  Age: 59 Year
  Sex: Female
  Weight: 63.6 kg

DRUGS (11)
  1. PACLITAXEL [Suspect]
     Active Substance: PACLITAXEL
     Indication: Breast cancer
     Dosage: UNK (LAST DOSE BEFORE SAE : 05/APR/2022, 150 MG)
     Route: 042
     Dates: start: 20220308
  2. ATEZOLIZUMAB [Suspect]
     Active Substance: ATEZOLIZUMAB
     Indication: Breast cancer
     Dosage: UNK (LAST DOSE BEFORE SAE: 15/FEB/2022,)
     Route: 042
     Dates: start: 20220104
  3. PHESGO [Suspect]
     Active Substance: HYALURONIDASE-ZZXF\PERTUZUMAB\TRASTUZUMAB
     Indication: Breast cancer
     Dosage: UNK (ON 08/MAR/2022, 1200 MG PERTUZUMAB / 600 MG TRAZTUZUMABLAST DOSE BEFORE SAE : 29/MAR/2022
     Route: 058
     Dates: start: 20220308
  4. CARBOPLATIN [Suspect]
     Active Substance: CARBOPLATIN
     Indication: Breast cancer
     Dosage: UNK (LAST DOSE BEFORE SAE : 05/APR/2022, 222 MG)
     Route: 042
     Dates: start: 20220308
  5. EPIRUBICIN [Concomitant]
     Active Substance: EPIRUBICIN
     Dosage: 157 MILLIGRAM
     Route: 042
     Dates: start: 20220104, end: 20220215
  6. CYCLOPHOSPHAMIDE [Concomitant]
     Active Substance: CYCLOPHOSPHAMIDE
     Dosage: 1044 MILLIGRAM
     Route: 042
     Dates: start: 20220104, end: 20220215
  7. ONDANSETRON [Concomitant]
     Active Substance: ONDANSETRON
     Dosage: 8 MILLIGRAM (START DATE:12-APR-2022)
     Route: 048
     Dates: end: 20220412
  8. ALIZAPRIDE HYDROCHLORIDE [Concomitant]
     Active Substance: ALIZAPRIDE HYDROCHLORIDE
     Dosage: 200 MILLIGRAM (START DATE:10-APR-2022)
     Route: 042
     Dates: end: 20220412
  9. BUTYLSCOPOLAMINE BROMIDE [Concomitant]
     Active Substance: BUTYLSCOPOLAMINE BROMIDE
     Dosage: 20 MILLIGRAM (START DATE:10-APR-2022)
     Route: 042
     Dates: end: 20220412
  10. TRAMADOL HYDROCHLORIDE [Concomitant]
     Active Substance: TRAMADOL HYDROCHLORIDE
     Dosage: 200 MILLIGRAM START DATE:10-APR-2022)
     Route: 042
     Dates: end: 20220412
  11. ALIZAPRIDE HYDROCHLORIDE [Concomitant]
     Active Substance: ALIZAPRIDE HYDROCHLORIDE
     Dosage: 150 MILLIGRAM (START DATE: 12-APR-2022 )
     Route: 048
     Dates: end: 20220415

REACTIONS (5)
  - Enteritis [Recovered/Resolved]
  - Abdominal pain [Recovered/Resolved]
  - Diarrhoea [Recovered/Resolved]
  - Vomiting [Recovered/Resolved]
  - Infusion related reaction [Recovered/Resolved]

NARRATIVE: CASE EVENT DATE: 20220308
